FAERS Safety Report 4553354-X (Version None)
Quarter: 2005Q1

REPORT INFORMATION
  Report Type: 
  Country: None (occurrence: None)
  Receive Date: 20050114
  Receipt Date: 20050106
  Transmission Date: 20050727
  Serious: Yes (Hospitalization, Other)
  Sender: FDA-Public Use
  Company Number: TR-ABBOTT-05P-161-0285837-00

PATIENT
  Age: 18 Year
  Sex: Male

DRUGS (7)
  1. CALCITRIOL [Suspect]
     Indication: RENAL FAILURE CHRONIC
     Route: 042
     Dates: end: 20010601
  2. CALCITRIOL [Suspect]
     Route: 042
  3. CALCITRIOL [Suspect]
     Route: 042
  4. CALCITRIOL [Suspect]
     Route: 042
  5. CALCITRIOL [Suspect]
     Route: 042
  6. CALCIUM CONTAINING PHOSPHORUS BINDERS [Concomitant]
     Indication: HYPERPHOSPHATAEMIA
     Dosage: NOT REPORTED
     Route: 065
  7. SEVALAMER [Concomitant]
     Indication: HYPERPHOSPHATAEMIA
     Dosage: NOT REPORTED
     Route: 065

REACTIONS (11)
  - BLOOD PARATHYROID HORMONE INCREASED [None]
  - CALCINOSIS [None]
  - CEREBRAL PARENCHYMAL CALCIFICATION [None]
  - FACIAL PALSY [None]
  - JOINT RANGE OF MOTION DECREASED [None]
  - NODULE [None]
  - OCULAR HYPERAEMIA [None]
  - PARATHYROID DISORDER [None]
  - PRURITUS [None]
  - VITH NERVE DISORDER [None]
  - VITH NERVE PARALYSIS [None]
